FAERS Safety Report 11404051 (Version 2)
Quarter: 2015Q4

REPORT INFORMATION
  Report Type: Report from Study
  Country: US (occurrence: US)
  Receive Date: 20150821
  Receipt Date: 20151008
  Transmission Date: 20160304
  Serious: Yes (Hospitalization, Other)
  Sender: FDA-Public Use
  Company Number: US-AMGEN-USASL2015084778

PATIENT
  Age: 75 Year
  Sex: Female

DRUGS (1)
  1. ENBREL [Suspect]
     Active Substance: ETANERCEPT
     Indication: RHEUMATOID ARTHRITIS
     Dosage: 50 MG, QWK
     Route: 065
     Dates: start: 20150611

REACTIONS (9)
  - Transient ischaemic attack [Unknown]
  - International normalised ratio increased [Unknown]
  - Local swelling [Unknown]
  - Pain [Unknown]
  - Head injury [Unknown]
  - Swelling [Unknown]
  - Fall [Unknown]
  - Therapeutic response decreased [Not Recovered/Not Resolved]
  - Atrial fibrillation [Unknown]

NARRATIVE: CASE EVENT DATE: 2015
